FAERS Safety Report 4959425-8 (Version None)
Quarter: 2006Q1

REPORT INFORMATION
  Report Type: 
  Country: None (occurrence: None)
  Receive Date: 20060331
  Receipt Date: 20050718
  Transmission Date: 20060701
  Serious: Yes (Hospitalization)
  Sender: FDA-Public Use
  Company Number: US-MERCK-0507USA02307

PATIENT
  Age: 77 Year
  Sex: Female
  Weight: 84 kg

DRUGS (5)
  1. VIOXX [Suspect]
     Indication: PAIN
     Route: 048
     Dates: start: 20030101, end: 20040901
  2. VIOXX [Suspect]
     Indication: ARTHRITIS
     Route: 048
     Dates: start: 20030101, end: 20040901
  3. TYLENOL (CAPLET) [Concomitant]
     Route: 065
  4. FAMOTIDINE [Concomitant]
     Route: 065
  5. SYNTHROID [Concomitant]
     Route: 065
     Dates: start: 19970101

REACTIONS (19)
  - BACK PAIN [None]
  - BLOOD PRESSURE INCREASED [None]
  - CARPAL TUNNEL SYNDROME [None]
  - CONCUSSION [None]
  - DIZZINESS [None]
  - FATIGUE [None]
  - GASTRIC ULCER [None]
  - GASTRITIS [None]
  - HEADACHE [None]
  - HYPERTENSION [None]
  - HYPERTENSIVE HEART DISEASE [None]
  - IMPAIRED HEALING [None]
  - ISCHAEMIC STROKE [None]
  - LOBAR PNEUMONIA [None]
  - MOBILITY DECREASED [None]
  - MYOPATHY [None]
  - OSTEOARTHRITIS [None]
  - PHYSICAL DISABILITY [None]
  - TRANSIENT ISCHAEMIC ATTACK [None]
